FAERS Safety Report 12169422 (Version 1)
Quarter: 2016Q1

REPORT INFORMATION
  Report Type: Spontaneous
  Country: US (occurrence: US)
  Receive Date: 20160310
  Receipt Date: 20160310
  Transmission Date: 20160526
  Serious: No
  Sender: FDA-Public Use
  Company Number: US-OTSUKA-2016_004156

PATIENT
  Age: 31 Year
  Sex: Male

DRUGS (2)
  1. ABILIFY MAINTENA [Suspect]
     Active Substance: ARIPIPRAZOLE
     Indication: BIPOLAR DISORDER
     Dosage: UNK, QM, MONTHLY
     Route: 030
     Dates: start: 201507, end: 201509
  2. ABILIFY MAINTENA [Suspect]
     Active Substance: ARIPIPRAZOLE
     Indication: DEPRESSION

REACTIONS (2)
  - Injection site joint discomfort [Unknown]
  - Off label use [Recovered/Resolved]
